FAERS Safety Report 5364070-9 (Version None)
Quarter: 2007Q2

REPORT INFORMATION
  Report Type: 
  Country: None (occurrence: None)
  Receive Date: 20070530
  Receipt Date: 20070309
  Transmission Date: 20071010
  Serious: No
  Sender: FDA-Public Use
  Company Number: 2006PV024762

PATIENT
  Age: 33 Year
  Sex: Female
  Weight: 95.5275 kg

DRUGS (8)
  1. BYETTA [Suspect]
     Indication: INSULIN RESISTANCE
     Dosage: 10 MCG; BID; SC, 5 MCG; BID; SC
     Route: 058
     Dates: start: 20061025, end: 20060101
  2. BYETTA [Suspect]
     Indication: INSULIN RESISTANCE
     Dosage: 10 MCG; BID; SC, 5 MCG; BID; SC
     Route: 058
     Dates: start: 20060101
  3. COUMADIN [Concomitant]
  4. ZYRTEC-D [Concomitant]
  5. BENICAR [Concomitant]
  6. MIDRIN [Concomitant]
  7. DARVOCET N-IDO [Concomitant]
  8. BUPAP [Concomitant]

REACTIONS (4)
  - BACK PAIN [None]
  - CHEST PAIN [None]
  - OXYGEN SATURATION DECREASED [None]
  - PAINFUL RESPIRATION [None]
